FAERS Safety Report 9763045 (Version 1)
Quarter: 2013Q4

REPORT INFORMATION
  Report Type: Spontaneous
  Country: US (occurrence: US)
  Receive Date: 20131216
  Receipt Date: 20131216
  Transmission Date: 20140711
  Serious: No
  Sender: FDA-Public Use
  Company Number: US-BIOGENIDEC-2013BI105322

PATIENT
  Age: 55 Year
  Sex: Female

DRUGS (7)
  1. TECFIDERA [Suspect]
     Indication: MULTIPLE SCLEROSIS
     Route: 048
  2. TOPIRAMATE [Concomitant]
  3. LORAZEPAM [Concomitant]
  4. BUPROPION [Concomitant]
  5. VESICARE [Concomitant]
  6. VITAMIN D [Concomitant]
  7. ALBUTEROL [Concomitant]

REACTIONS (2)
  - Flushing [Unknown]
  - Rash generalised [Unknown]
